FAERS Safety Report 4531454-8 (Version None)
Quarter: 2004Q4

REPORT INFORMATION
  Report Type: 
  Country: None (occurrence: None)
  Receive Date: 20041216
  Receipt Date: 20041206
  Transmission Date: 20050328
  Serious: Yes (Other)
  Sender: FDA-Public Use
  Company Number: USA-2004-0017935

PATIENT
  Age: 4 Year
  Sex: Female

DRUGS (1)
  1. OXYCONTIN TABLETS (OXYCODONE HYDROCLORIDE) CR TABLET [Suspect]

REACTIONS (4)
  - ACCIDENTAL EXPOSURE [None]
  - CONVULSION [None]
  - VICTIM OF CRIME [None]
  - VOMITING [None]
